FAERS Safety Report 5079320-6 (Version None)
Quarter: 2006Q3

REPORT INFORMATION
  Report Type: 
  Country: None (occurrence: None)
  Receive Date: 20060720
  Receipt Date: 20050705
  Transmission Date: 20061208
  Serious: Yes (Hospitalization, Other)
  Sender: FDA-Public Use
  Company Number: 2005100523

PATIENT
  Age: 53 Year
  Sex: Female

DRUGS (7)
  1. CELEBREX [Suspect]
     Indication: ILL-DEFINED DISORDER
     Dosage: 200 MG
  2. ZOCOR [Concomitant]
  3. METOPROLOL (METOPROLOL) [Concomitant]
  4. PREMARIN [Concomitant]
  5. NEURONTIN [Concomitant]
  6. MOTRIN [Concomitant]
  7. NITROGLYCERIN [Concomitant]

REACTIONS (4)
  - ACUTE MYOCARDIAL INFARCTION [None]
  - DYSPNOEA [None]
  - NAUSEA [None]
  - URINARY TRACT INFECTION [None]
